FAERS Safety Report 18756792 (Version 1)
Quarter: 2021Q1

REPORT INFORMATION
  Report Type: Spontaneous
  Country: US (occurrence: US)
  Receive Date: 20210118
  Receipt Date: 20210118
  Transmission Date: 20210419
  Serious: Yes (Other)
  Sender: FDA-Public Use
  Company Number: None

PATIENT
  Age: 69 Year
  Sex: Male
  Weight: 80.1 kg

DRUGS (4)
  1. METROPOL [Concomitant]
  2. ELIQUIS [Concomitant]
     Active Substance: APIXABAN
  3. LEVOFLOXACIN. [Suspect]
     Active Substance: LEVOFLOXACIN
     Indication: HELICOBACTER INFECTION
     Dosage: ?          QUANTITY:12 TABLET(S);?
     Route: 048
  4. MULTI VITAMIN [Concomitant]
     Active Substance: VITAMINS

REACTIONS (8)
  - Arthralgia [None]
  - Adverse drug reaction [None]
  - Secretion discharge [None]
  - Swelling [None]
  - Nervousness [None]
  - Anxiety [None]
  - Groin pain [None]
  - Fatigue [None]

NARRATIVE: CASE EVENT DATE: 20210106
